FAERS Safety Report 11632450 (Version 8)
Quarter: 2017Q2

REPORT INFORMATION
  Report Type: Report from Study
  Country: US (occurrence: US)
  Receive Date: 20151015
  Receipt Date: 20170511
  Transmission Date: 20170829
  Serious: No
  Sender: FDA-Public Use
  Company Number: PHEH2015US020352

PATIENT
  Age: 56 Year
  Sex: Female
  Weight: 63.49 kg

DRUGS (6)
  1. EXTAVIA [Suspect]
     Active Substance: INTERFERON BETA-1B
     Dosage: WEEK 5-6, 0.1875 MG (0.75 ML), QOD
     Route: 058
  2. EXTAVIA [Suspect]
     Active Substance: INTERFERON BETA-1B
     Indication: MULTIPLE SCLEROSIS
     Dosage: WEEK 1-2, 0.0625 MG (0.25 ML), QOD
     Route: 058
     Dates: start: 20151008
  3. ADVIL [Concomitant]
     Active Substance: IBUPROFEN
     Indication: PRODUCT USED FOR UNKNOWN INDICATION
     Route: 065
  4. EXTAVIA [Suspect]
     Active Substance: INTERFERON BETA-1B
     Dosage: WEEK 3-4, 0.125 MG (0.5 ML), QOD
     Route: 058
  5. ADVIL ALLERGY AND CONGESTION RELIEF [Concomitant]
     Active Substance: CHLORPHENIRAMINE MALEATE\IBUPROFEN\PHENYLEPHRINE HYDROCHLORIDE
     Indication: PRODUCT USED FOR UNKNOWN INDICATION
     Route: 065
  6. EXTAVIA [Suspect]
     Active Substance: INTERFERON BETA-1B
     Dosage: WEEKS 7 PLUS: 0.25 MG (1 ML), QOD
     Route: 058

REACTIONS (23)
  - Pyrexia [Not Recovered/Not Resolved]
  - Hypoaesthesia oral [Unknown]
  - Laziness [Unknown]
  - Injection site bruising [Unknown]
  - Nausea [Unknown]
  - Headache [Unknown]
  - Asthenia [Unknown]
  - Influenza like illness [Not Recovered/Not Resolved]
  - Swollen tongue [Recovering/Resolving]
  - Fatigue [Unknown]
  - Mouth swelling [Recovering/Resolving]
  - Injection site discomfort [Unknown]
  - Hyperhidrosis [Not Recovered/Not Resolved]
  - Injection site mass [Not Recovered/Not Resolved]
  - Cold sweat [Unknown]
  - Injection site reaction [Not Recovered/Not Resolved]
  - Axillary pain [Unknown]
  - Injection site induration [Not Recovered/Not Resolved]
  - Injection site warmth [Not Recovered/Not Resolved]
  - Injection site pain [Not Recovered/Not Resolved]
  - Pain [Recovering/Resolving]
  - Injection site erythema [Not Recovered/Not Resolved]
  - Blood pressure increased [Unknown]

NARRATIVE: CASE EVENT DATE: 201510
